FAERS Safety Report 21648723 (Version 1)
Quarter: 2022Q4

REPORT INFORMATION
  Report Type: Spontaneous
  Country: US (occurrence: None)
  Receive Date: 20221123
  Receipt Date: 20221123
  Transmission Date: 20230113
  Serious: Yes (Hospitalization)
  Sender: FDA-Public Use
  Company Number: None

PATIENT
  Sex: Female
  Weight: 78.6 kg

DRUGS (2)
  1. ERBITUX [Suspect]
     Active Substance: CETUXIMAB
     Dates: end: 20221109
  2. TAXOTERE [Suspect]
     Active Substance: DOCETAXEL
     Dates: end: 20221109

REACTIONS (4)
  - Salivary hypersecretion [None]
  - Vomiting [None]
  - Hypophagia [None]
  - Choking [None]

NARRATIVE: CASE EVENT DATE: 20221117
